FAERS Safety Report 8217539-3 (Version None)
Quarter: 2012Q1

REPORT INFORMATION
  Report Type: 
  Country: None (occurrence: None)
  Receive Date: 20120305
  Receipt Date: 20120105
  Transmission Date: 20120608
  Serious: Yes (Hospitalization)
  Sender: FDA-Public Use
  Company Number: 1000026772

PATIENT
  Age: 73 Year
  Sex: Male

DRUGS (1)
  1. DALIRESP [Suspect]

REACTIONS (2)
  - VOMITING [None]
  - DIARRHOEA [None]
